FAERS Safety Report 5804041-9 (Version None)
Quarter: 2008Q3

REPORT INFORMATION
  Report Type: 
  Country: None (occurrence: None)
  Receive Date: 20080703
  Receipt Date: 20071128
  Transmission Date: 20090109
  Serious: No
  Sender: FDA-Public Use
  Company Number: 07H-163-0313526-00

PATIENT
  Age: 35 Year
  Sex: Female
  Weight: 66.2252 kg

DRUGS (2)
  1. MARCAINE [Suspect]
     Indication: SPINAL ANAESTHESIA
     Dosage: 13.5 MG, ONCE, INTRATHECAL
     Route: 037
     Dates: start: 20071126, end: 20071126
  2. DURAMORPH PF [Concomitant]

REACTIONS (2)
  - HYPOTENSION [None]
  - UNRESPONSIVE TO STIMULI [None]
